FAERS Safety Report 7771402-0 (Version None)
Quarter: 2011Q3

REPORT INFORMATION
  Report Type: 
  Country: None (occurrence: None)
  Receive Date: 20110922
  Receipt Date: 20100825
  Transmission Date: 20111222
  Serious: Yes (Other)
  Sender: FDA-Public Use
  Company Number: US-ASTRAZENECA-2007UW25111

PATIENT
  Age: 436 Month
  Sex: Female
  Weight: 111 kg

DRUGS (18)
  1. SEROQUEL [Suspect]
     Dosage: 25MG-300MG
     Route: 048
     Dates: start: 20050201, end: 20061201
  2. CYMBALTA [Concomitant]
     Dates: start: 20070328
  3. ABILIFY [Concomitant]
     Dates: start: 20070328
  4. SEROQUEL [Suspect]
     Indication: DEPRESSION
     Route: 048
     Dates: start: 20041208
  5. SEROQUEL [Suspect]
     Dosage: 25MG-300MG
     Route: 048
     Dates: start: 20050201, end: 20061201
  6. LEXAPRO [Concomitant]
     Indication: MENTAL DISORDER
     Route: 048
     Dates: start: 20050816
  7. ZOCOR [Concomitant]
     Dates: start: 20070328
  8. SEROQUEL [Suspect]
     Indication: ANXIETY
     Route: 048
     Dates: start: 20041208
  9. SEROQUEL [Suspect]
     Dosage: 25MG-300MG
     Route: 048
     Dates: start: 20050201, end: 20061201
  10. VISTARIL [Concomitant]
     Dosage: 25 MG, EVERY 4 TO 5 HOURS
     Route: 048
     Dates: start: 20060127
  11. DEPO-PROVERA [Concomitant]
     Dosage: 2) 5 MG DAILY
     Route: 048
     Dates: start: 20040608
  12. SEROQUEL [Suspect]
     Indication: MENTAL DISORDER
     Route: 048
     Dates: start: 20041208
  13. TRAZODONE HYDROCHLORIDE [Concomitant]
     Dates: start: 20070306
  14. CAPTOPRIL [Concomitant]
     Route: 048
     Dates: start: 20040608
  15. ATENOLOL [Concomitant]
     Route: 048
     Dates: start: 20040608
  16. HYDROCHLOROTHIAZIDE [Concomitant]
     Dosage: 1/2 25 MG , EVERY MORNING
     Route: 048
     Dates: start: 20040608
  17. LISINOPRIL [Concomitant]
     Dates: start: 20070131
  18. CYMBALTA [Concomitant]
     Dosage: 30-60 MG
     Dates: start: 20070101

REACTIONS (6)
  - DIABETIC COMPLICATION [None]
  - DIABETES MELLITUS INADEQUATE CONTROL [None]
  - OBESITY [None]
  - DIABETES MELLITUS [None]
  - TYPE 2 DIABETES MELLITUS [None]
  - PANCREATITIS [None]
